FAERS Safety Report 18376913 (Version 2)
Quarter: 2020Q4

REPORT INFORMATION
  Report Type: Report from Study
  Country: CO (occurrence: CO)
  Receive Date: 20201013
  Receipt Date: 20201022
  Transmission Date: 20210114
  Serious: Yes (Death, Life-Threatening, Hospitalization)
  Sender: FDA-Public Use
  Company Number: CO-INCYTE CORPORATION-2020IN009340

PATIENT

DRUGS (2)
  1. JAKAVI [Suspect]
     Active Substance: RUXOLITINIB
     Dosage: DAILY
     Route: 048
     Dates: start: 20200721, end: 20200916
  2. JAKAVI [Suspect]
     Active Substance: RUXOLITINIB
     Indication: MYELOFIBROSIS
     Dosage: 15 MG, BID (EVERY 12 HOURS)
     Route: 048

REACTIONS (18)
  - Movement disorder [Unknown]
  - Seizure [Unknown]
  - Dizziness [Recovered/Resolved]
  - Fall [Unknown]
  - Cerebral haemorrhage [Unknown]
  - Cerebrovascular accident [Unknown]
  - Full blood count decreased [Unknown]
  - Platelet count decreased [Unknown]
  - Condition aggravated [Unknown]
  - Product supply issue [Unknown]
  - Death [Fatal]
  - General physical health deterioration [Unknown]
  - Urinary tract infection [Unknown]
  - Malaise [Unknown]
  - Vomiting [Unknown]
  - Asthenia [Unknown]
  - Loss of consciousness [Unknown]
  - Nausea [Unknown]

NARRATIVE: CASE EVENT DATE: 20200904
